FAERS Safety Report 4721249-4 (Version None)
Quarter: 2005Q3

REPORT INFORMATION
  Report Type: 
  Country: None (occurrence: None)
  Receive Date: 20050720
  Receipt Date: 20050707
  Transmission Date: 20060218
  Serious: Yes (Other)
  Sender: FDA-Public Use
  Company Number: 2005092307

PATIENT
  Age: 30 Year
  Sex: Female

DRUGS (2)
  1. CELEBREX [Suspect]
     Indication: FOOT FRACTURE
     Dosage: 400 MG (200 MG, 2 IN 1 D) ORAL
     Route: 048
     Dates: start: 20050614
  2. ACETAMINOPHEN W/ CODEINE [Suspect]
     Indication: ILL-DEFINED DISORDER
     Dosage: ORAL
     Route: 048
     Dates: start: 20050614, end: 20050601

REACTIONS (3)
  - DIZZINESS [None]
  - DRUG INEFFECTIVE [None]
  - PAIN IN EXTREMITY [None]
